FAERS Safety Report 15775215 (Version 1)
Quarter: 2018Q4

REPORT INFORMATION
  Report Type: Report from Study
  Country: DE (occurrence: DE)
  Receive Date: 20181231
  Receipt Date: 20181231
  Transmission Date: 20190205
  Serious: Yes (Life-Threatening, Hospitalization)
  Sender: FDA-Public Use
  Company Number: DE-ACCORD-098598

PATIENT
  Age: 74 Year
  Sex: Male
  Weight: 87 kg

DRUGS (8)
  1. ALIMTA [Suspect]
     Active Substance: PEMETREXED DISODIUM
     Indication: BRONCHIAL CARCINOMA
     Route: 042
     Dates: start: 20150625
  2. DIAZEPAM. [Concomitant]
     Active Substance: DIAZEPAM
     Indication: BRONCHIAL CARCINOMA
     Route: 048
     Dates: start: 20150625
  3. APREPITANT. [Concomitant]
     Active Substance: APREPITANT
     Indication: BRONCHIAL CARCINOMA
     Route: 048
  4. AVASTIN [Suspect]
     Active Substance: BEVACIZUMAB
     Indication: BRONCHIAL CARCINOMA
     Route: 042
     Dates: start: 20150806
  5. CISPLATIN. [Suspect]
     Active Substance: CISPLATIN
     Indication: BRONCHIAL CARCINOMA
     Route: 042
     Dates: start: 20150625
  6. GRANISETRON [Concomitant]
     Active Substance: GRANISETRON
     Indication: BRONCHIAL CARCINOMA
     Route: 048
  7. CARBOPLATIN. [Suspect]
     Active Substance: CARBOPLATIN
     Indication: BRONCHIAL CARCINOMA
     Route: 042
     Dates: start: 20150625
  8. DEXAMETHASONE. [Concomitant]
     Active Substance: DEXAMETHASONE
     Indication: BRONCHIAL CARCINOMA
     Route: 048

REACTIONS (3)
  - Pneumonia [Recovered/Resolved]
  - Transient ischaemic attack [Recovered/Resolved]
  - Ileus [Recovered/Resolved]

NARRATIVE: CASE EVENT DATE: 20150708
